FAERS Safety Report 6846069-6 (Version None)
Quarter: 2010Q3

REPORT INFORMATION
  Report Type: 
  Country: None (occurrence: None)
  Receive Date: 20100715
  Receipt Date: 20080521
  Transmission Date: 20110219
  Serious: Yes (Other)
  Sender: FDA-Public Use
  Company Number: US-PFIZER INC-2007074173

PATIENT
  Sex: Female
  Weight: 54.4 kg

DRUGS (11)
  1. CHANTIX [Suspect]
     Indication: EX-TOBACCO USER
     Route: 048
     Dates: start: 20070824
  2. COMBIVENT [Concomitant]
  3. VIRAMUNE [Concomitant]
  4. REYATAZ [Concomitant]
  5. ZYPREXA [Concomitant]
  6. REMERON [Concomitant]
  7. PREVENCOR [Concomitant]
  8. SEPTRA DS [Concomitant]
  9. COMBIVIR [Concomitant]
  10. ADVAIR DISKUS 100/50 [Concomitant]
  11. PRAVACHOL [Concomitant]

REACTIONS (1)
  - HERPES ZOSTER [None]
